FAERS Safety Report 12659187 (Version 1)
Quarter: 2016Q3

REPORT INFORMATION
  Report Type: Report from Study
  Country: BR (occurrence: BR)
  Receive Date: 20160817
  Receipt Date: 20160817
  Transmission Date: 20161109
  Serious: Yes (Other)
  Sender: FDA-Public Use
  Company Number: PHHY2016BR112383

PATIENT
  Sex: Male
  Weight: 35 kg

DRUGS (1)
  1. ONBREZ BREEZHALER [Suspect]
     Active Substance: INDACATEROL
     Indication: PNEUMONIA
     Dosage: 150 UG, QD
     Route: 055

REACTIONS (4)
  - Pneumonia [Unknown]
  - Malaise [Unknown]
  - Abasia [Unknown]
  - Product use issue [Unknown]
